FAERS Safety Report 17599168 (Version 1)
Quarter: 2020Q1

REPORT INFORMATION
  Report Type: Report from Study
  Country: CH (occurrence: CH)
  Receive Date: 20200330
  Receipt Date: 20200330
  Transmission Date: 20200409
  Serious: Yes (Congenital Anomaly)
  Sender: FDA-Public Use
  Company Number: CH-TEVA-2020-CH-1215116

PATIENT

DRUGS (4)
  1. MIRTAZAPINE. [Suspect]
     Active Substance: MIRTAZAPINE
     Route: 064
  2. CLOMIPRAMINE [Suspect]
     Active Substance: CLOMIPRAMINE
     Route: 064
  3. CLORAZEPATE [Suspect]
     Active Substance: CLORAZEPATE DIPOTASSIUM
     Route: 064
  4. LORAZEPAM. [Suspect]
     Active Substance: LORAZEPAM
     Route: 064

REACTIONS (2)
  - Foetal exposure during pregnancy [Unknown]
  - Fallot^s tetralogy [Unknown]
